FAERS Safety Report 21715022 (Version 1)
Quarter: 2022Q4

REPORT INFORMATION
  Report Type: Spontaneous
  Country: US (occurrence: None)
  Receive Date: 20221209
  Receipt Date: 20221209
  Transmission Date: 20230112
  Serious: Yes (Other)
  Sender: FDA-Public Use
  Company Number: None

PATIENT
  Sex: Male
  Weight: 84.15 kg

DRUGS (6)
  1. JELMYTO [Suspect]
     Active Substance: MITOMYCIN
  2. ATORVASTATIN CALCIUM [Concomitant]
  3. CARVEDILOL [Concomitant]
  4. LISINOPRIL [Concomitant]
  5. TAMSULOSIN [Concomitant]
     Active Substance: TAMSULOSIN
  6. ASPIRIN [Concomitant]
     Active Substance: ASPIRIN

REACTIONS (7)
  - Renal pain [None]
  - Dysuria [None]
  - Dysuria [None]
  - Therapy cessation [None]
  - Chills [None]
  - Pyrexia [None]
  - Pseudomonas infection [None]
